FAERS Safety Report 8158634-7 (Version None)
Quarter: 2012Q1

REPORT INFORMATION
  Report Type: 
  Country: None (occurrence: None)
  Receive Date: 20120223
  Receipt Date: 20120214
  Transmission Date: 20120608
  Serious: Yes (Other)
  Sender: FDA-Public Use
  Company Number: US-US-EMD SERONO, INC.-236992K09USA

PATIENT
  Sex: Female
  Weight: 100 kg

DRUGS (4)
  1. NORTRIPTYLINE HCL [Concomitant]
     Indication: NERVOUSNESS
     Route: 065
  2. BACLOFEN [Concomitant]
     Indication: MUSCLE SPASTICITY
     Route: 065
  3. REBIF [Suspect]
     Indication: MULTIPLE SCLEROSIS
     Route: 058
     Dates: start: 20090130
  4. CITALOPRAM HYDROBROMIDE [Concomitant]
     Indication: DEPRESSION
     Route: 065

REACTIONS (5)
  - TYPE 2 DIABETES MELLITUS [None]
  - CHILLS [None]
  - MALAISE [None]
  - HEPATIC ENZYME INCREASED [None]
  - INJECTION SITE HAEMATOMA [None]
